FAERS Safety Report 7036344-7 (Version None)
Quarter: 2010Q4

REPORT INFORMATION
  Report Type: 
  Country: None (occurrence: None)
  Receive Date: 20101008
  Receipt Date: 20100930
  Transmission Date: 20110411
  Serious: Yes (Death, Other)
  Sender: FDA-Public Use
  Company Number: US-AMGEN-QUU442406

PATIENT
  Sex: Female

DRUGS (1)
  1. NPLATE [Suspect]
     Indication: LYMPHOMA
     Dates: end: 20100427

REACTIONS (2)
  - DRUG INEFFECTIVE [None]
  - LYMPHOMA [None]
